FAERS Safety Report 15042400 (Version 1)
Quarter: 2018Q2

REPORT INFORMATION
  Report Type: Spontaneous
  Country: US (occurrence: US)
  Receive Date: 20180531
  Receipt Date: 20180531
  Transmission Date: 20180711
  Serious: Yes (Other)
  Sender: FDA-Public Use
  Company Number: None

PATIENT
  Age: 9 Year
  Sex: Female
  Weight: 30 kg

DRUGS (1)
  1. METHYLPHENIDATE 36MG [Suspect]
     Active Substance: METHYLPHENIDATE
     Indication: ATTENTION DEFICIT/HYPERACTIVITY DISORDER
     Dates: start: 20170403

REACTIONS (4)
  - Headache [None]
  - Vomiting [None]
  - Product substitution issue [None]
  - Sedation [None]

NARRATIVE: CASE EVENT DATE: 20171201
